FAERS Safety Report 8054789-3 (Version None)
Quarter: 2012Q1

REPORT INFORMATION
  Report Type: 
  Country: None (occurrence: None)
  Receive Date: 20120112
  Receipt Date: 20120104
  Transmission Date: 20120608
  Serious: Yes (Disabling)
  Sender: FDA-Public Use
  Company Number: 1147027

PATIENT
  Age: 63 Year
  Sex: Female

DRUGS (5)
  1. LIDOCAINE [Suspect]
     Indication: NERVE BLOCK
     Dosage: 5ML
     Dates: start: 20100114
  2. (METAOXEDRIN) [Concomitant]
  3. NAROPIN [Suspect]
     Indication: NERVE BLOCK
     Dosage: 5 ML MILLILITRE(S)
     Dates: start: 20100114
  4. FENTANYL [Suspect]
     Indication: GENERAL ANAESTHESIA
     Dates: start: 20100114
  5. PROPOFOL [Suspect]
     Indication: GENERAL ANAESTHESIA
     Dates: start: 20100114

REACTIONS (12)
  - HYPERAESTHESIA [None]
  - MEMORY IMPAIRMENT [None]
  - RESPIRATORY DISORDER [None]
  - CHOKING SENSATION [None]
  - SALIVARY HYPERSECRETION [None]
  - TONGUE PARALYSIS [None]
  - HYPOAESTHESIA [None]
  - DROOLING [None]
  - HEADACHE [None]
  - BLOOD PRESSURE DECREASED [None]
  - APHASIA [None]
  - MOVEMENT DISORDER [None]
